FAERS Safety Report 11667030 (Version 6)
Quarter: 2016Q4

REPORT INFORMATION
  Report Type: Report from Study
  Country: JP (occurrence: JP)
  Receive Date: 20151027
  Receipt Date: 20161020
  Transmission Date: 20170206
  Serious: Yes (Death, Life-Threatening, Hospitalization)
  Sender: FDA-Public Use
  Company Number: JP-ASTELLAS-2015JP021149AA

PATIENT
  Age: 82 Year
  Sex: Male
  Weight: 57 kg

DRUGS (12)
  1. ENZALUTAMIDE [Suspect]
     Active Substance: ENZALUTAMIDE
     Indication: HORMONE-REFRACTORY PROSTATE CANCER
     Dosage: UNK UNK, UNKNOWN FREQ.
     Route: 065
  2. PREDNISOLONE. [Concomitant]
     Active Substance: PREDNISOLONE
     Indication: HORMONE-REFRACTORY PROSTATE CANCER
     Route: 048
     Dates: start: 20150807, end: 20151004
  3. LASIX [Concomitant]
     Active Substance: FUROSEMIDE
     Indication: ASCITES
     Route: 048
     Dates: start: 20150822, end: 20151004
  4. RANITIDINE. [Concomitant]
     Active Substance: RANITIDINE
     Indication: GASTRIC ULCER
     Route: 042
     Dates: start: 20151006, end: 20151017
  5. ENZALUTAMIDE [Suspect]
     Active Substance: ENZALUTAMIDE
     Route: 048
     Dates: start: 20150826, end: 20151004
  6. ELIETEN                            /00041901/ [Concomitant]
     Active Substance: METOCLOPRAMIDE
     Indication: VOMITING
  7. ASPARA-CA [Concomitant]
     Active Substance: CALCIUM ASPARTATE
     Indication: METASTASES TO BONE
     Route: 048
     Dates: start: 20150810, end: 20151004
  8. ELIETEN                            /00041901/ [Concomitant]
     Active Substance: METOCLOPRAMIDE
     Indication: NAUSEA
     Dosage: UNK UNK, UNKNOWN FREQ.
     Route: 065
     Dates: start: 20151013
  9. ZYTIGA [Concomitant]
     Active Substance: ABIRATERONE ACETATE
     Indication: HORMONE-REFRACTORY PROSTATE CANCER
     Route: 048
     Dates: start: 20150807, end: 20150817
  10. RANMARK [Concomitant]
     Active Substance: DENOSUMAB
     Indication: METASTASES TO BONE
     Route: 058
     Dates: start: 20150810, end: 20151005
  11. LEUPRORELIN [Concomitant]
     Active Substance: LEUPROLIDE ACETATE
     Indication: HORMONE-REFRACTORY PROSTATE CANCER
     Route: 058
     Dates: start: 20150810, end: 20151005
  12. ALFACALCIDOL [Concomitant]
     Active Substance: ALFACALCIDOL
     Indication: METASTASES TO BONE
     Dosage: 0.25 ?G, TWICE DAILY
     Route: 048
     Dates: start: 20150810, end: 20151004

REACTIONS (8)
  - Decreased appetite [Not Recovered/Not Resolved]
  - Malaise [Unknown]
  - Dysgeusia [Not Recovered/Not Resolved]
  - Nausea [Not Recovered/Not Resolved]
  - Vomiting [Not Recovered/Not Resolved]
  - Gastric ulcer haemorrhage [Fatal]
  - Hypoalbuminaemia [Not Recovered/Not Resolved]
  - Gastritis [Not Recovered/Not Resolved]

NARRATIVE: CASE EVENT DATE: 20150919
